FAERS Safety Report 26183160 (Version 2)
Quarter: 2025Q4

REPORT INFORMATION
  Report Type: Spontaneous
  Country: EU (occurrence: EU)
  Receive Date: 20251221
  Receipt Date: 20251225
  Transmission Date: 20260118
  Serious: No
  Sender: ASTELLAS
  Company Number: EU-ASTELLAS-2025-AER-069732

PATIENT
  Age: 78 Year
  Sex: Male

DRUGS (1)
  1. ENZALUTAMIDE [Suspect]
     Active Substance: ENZALUTAMIDE
     Indication: Product used for unknown indication
     Dosage: 40 MG, 4 TABLETS/DAY
     Route: 065
     Dates: start: 202510

REACTIONS (1)
  - Asthenia [Unknown]

NARRATIVE: CASE EVENT DATE: 20250101
